FAERS Safety Report 9102594 (Version 5)
Quarter: 2014Q3

REPORT INFORMATION
  Report Type: Spontaneous
  Country: US (occurrence: US)
  Receive Date: 20130219
  Receipt Date: 20140714
  Transmission Date: 20150326
  Serious: Yes (Hospitalization, Other)
  Sender: FDA-Public Use
  Company Number: US-009507513-1302USA006718

PATIENT
  Sex: Female
  Weight: 131.52 kg

DRUGS (2)
  1. NUVARING [Suspect]
     Active Substance: ETHINYL ESTRADIOL\ETONOGESTREL
     Indication: ENDOMETRIOSIS
  2. NUVARING [Suspect]
     Active Substance: ETHINYL ESTRADIOL\ETONOGESTREL
     Indication: CONTRACEPTION
     Dosage: UNK
     Route: 067
     Dates: start: 20111025, end: 20120407

REACTIONS (22)
  - Appendicectomy [Unknown]
  - Anxiety [Unknown]
  - Nephropathy [Unknown]
  - Nausea [Unknown]
  - Gastric polyps [Unknown]
  - Off label use [Unknown]
  - Musculoskeletal chest pain [Unknown]
  - Pancreatic sphincterotomy [Unknown]
  - Depression [Unknown]
  - Gastrooesophageal reflux disease [Unknown]
  - Dyspnoea [Unknown]
  - Anxiety [Unknown]
  - Deep vein thrombosis [Unknown]
  - Cholecystectomy [Unknown]
  - Cholelithiasis [Unknown]
  - Granuloma [Unknown]
  - Laparoscopy [Unknown]
  - Pleuritic pain [Unknown]
  - Pulmonary mass [Unknown]
  - Pancreatitis [Unknown]
  - Coagulopathy [Unknown]
  - Calculus ureteric [Unknown]

NARRATIVE: CASE EVENT DATE: 20111025
